FAERS Safety Report 7105813-3 (Version None)
Quarter: 2010Q4

REPORT INFORMATION
  Report Type: 
  Country: None (occurrence: None)
  Receive Date: 20101110
  Receipt Date: 20101104
  Transmission Date: 20110411
  Serious: Yes (Life-Threatening, Disabling, Other)
  Sender: FDA-Public Use
  Company Number: GB-1183964

PATIENT
  Age: 67 Year
  Sex: Female

DRUGS (7)
  1. CIPROFLOXACIN [Suspect]
  2. ALENDRONATE SODIUM [Suspect]
     Dosage: ORAL
     Route: 048
  3. AMITRIPTYLINE HYDROCHLORIDE [Suspect]
  4. AMLODIPINE [Suspect]
  5. FOSAMAX [Suspect]
  6. LOSARTAN POTASSIUM (LOSARTAN POTASSIUM) TABLET [Suspect]
     Dosage: ORAL
     Route: 048
     Dates: start: 20070221, end: 20100701
  7. RISEDRONATE SODIUM [Suspect]

REACTIONS (14)
  - ARTHRALGIA [None]
  - BALANCE DISORDER [None]
  - CONDITION AGGRAVATED [None]
  - DIZZINESS [None]
  - DYSPNOEA [None]
  - FEAR [None]
  - HEART RATE INCREASED [None]
  - HEART RATE IRREGULAR [None]
  - HYPERTENSION [None]
  - HYPOREFLEXIA [None]
  - IRRITABLE BOWEL SYNDROME [None]
  - JUDGEMENT IMPAIRED [None]
  - PANIC ATTACK [None]
  - SYNCOPE [None]
